FAERS Safety Report 10110486 (Version 3)
Quarter: 2014Q3

REPORT INFORMATION
  Report Type: Report from Study
  Country: BR (occurrence: BR)
  Receive Date: 20140425
  Receipt Date: 20140725
  Transmission Date: 20150326
  Serious: Yes (Other)
  Sender: FDA-Public Use
  Company Number: PHHY2014BR049981

PATIENT
  Sex: Female
  Weight: 90 kg

DRUGS (12)
  1. DUPHASTON [Concomitant]
     Active Substance: DYDROGESTERONE
     Indication: HORMONE LEVEL ABNORMAL
     Dosage: 1 DF, DAILY (USED FOR 10 CONSECUTIVE DAYS, EACH 3 MONTHS)
  2. PREDSIM [Concomitant]
     Active Substance: PREDNISOLONE
     Indication: ASTHMA
     Dosage: 10 MG, DAILY
     Route: 048
     Dates: start: 2011
  3. ACLASTA [Suspect]
     Active Substance: ZOLEDRONIC ACID
     Indication: OSTEOPOROSIS
     Dosage: 5 MG, YEARLY
     Route: 042
     Dates: start: 2013
  4. AZITHROMYCIN [Concomitant]
     Active Substance: AZITHROMYCIN ANHYDROUS
     Indication: ASTHMA
     Dosage: 3 DF, WEEKLY
     Dates: start: 2012
  5. ONBREZ [Concomitant]
     Active Substance: INDACATEROL
     Indication: ASTHMA
     Dosage: 150 UG, DAILY
     Route: 055
     Dates: start: 2011
  6. SYNTHROID [Concomitant]
     Active Substance: LEVOTHYROXINE SODIUM
     Indication: HYPOTHYROIDISM
     Dosage: 125 MG, UNK
  7. SPIRONOLACTONE. [Concomitant]
     Active Substance: SPIRONOLACTONE
     Indication: BLOOD PRESSURE ABNORMAL
     Dosage: 40 MG, DAILY
     Route: 048
     Dates: start: 2013
  8. SPIRIVA [Concomitant]
     Active Substance: TIOTROPIUM BROMIDE MONOHYDRATE
     Indication: ASTHMA
     Dosage: 2 DF, DAILY
     Route: 055
     Dates: start: 2004
  9. CORTISONE [Suspect]
     Active Substance: CORTISONE\HYDROCORTISONE
     Indication: ASTHMA
     Dosage: UNK UKN EVERY DAY
  10. ESTREVA [Concomitant]
     Active Substance: ESTRADIOL
     Indication: HORMONE LEVEL ABNORMAL
     Dosage: UNK UKN, QD
  11. SERETIDE [Concomitant]
     Active Substance: FLUTICASONE FUROATE\SALMETEROL XINAFOATE
     Indication: ASTHMA
     Dosage: 4 DF, DAILY
     Route: 055
     Dates: start: 2004
  12. OLMETEC COMP [Concomitant]
     Indication: HYPERTENSION
     Dosage: 1 DF, DAILY
     Route: 048
     Dates: start: 2011

REACTIONS (4)
  - Foot fracture [Recovered/Resolved]
  - Splinter [Recovered/Resolved]
  - Stress fracture [Recovered/Resolved]
  - Pathological fracture [Recovered/Resolved]
